FAERS Safety Report 13693536 (Version 3)
Quarter: 2017Q3

REPORT INFORMATION
  Report Type: Spontaneous
  Country: RS (occurrence: RS)
  Receive Date: 20170627
  Receipt Date: 20170719
  Transmission Date: 20171127
  Serious: Yes (Other)
  Sender: FDA-Public Use
  Company Number: RS-BAXTER-2017BAX023794

PATIENT
  Age: 25 Year
  Sex: Male

DRUGS (9)
  1. CEFAZOLIN [Concomitant]
     Active Substance: CEFAZOLIN
     Indication: PRODUCT USED FOR UNKNOWN INDICATION
     Route: 033
     Dates: start: 20170412, end: 20170420
  2. VANCOMYCIN [Concomitant]
     Active Substance: VANCOMYCIN
     Indication: PRODUCT USED FOR UNKNOWN INDICATION
     Route: 033
     Dates: start: 20170511, end: 20170525
  3. DIANEAL [Suspect]
     Active Substance: CALCIUM CHLORIDE\DEXTROSE\MAGNESIUM CHLORIDE\SODIUM CHLORIDE\SODIUM LACTATE
     Indication: PERITONEAL DIALYSIS
     Route: 033
     Dates: start: 20170307
  4. EXTRANEAL [Suspect]
     Active Substance: CALCIUM CHLORIDE\ICODEXTRIN\MAGNESIUM CHLORIDE\SODIUM CHLORIDE\SODIUM LACTATE
     Indication: PERITONEAL DIALYSIS
     Route: 033
     Dates: start: 20170307
  5. CEFTAZIDIME. [Concomitant]
     Active Substance: CEFTAZIDIME
     Indication: PRODUCT USED FOR UNKNOWN INDICATION
     Route: 033
     Dates: start: 20170412, end: 20170420
  6. VANCOMYCIN [Concomitant]
     Active Substance: VANCOMYCIN
     Route: 033
     Dates: start: 20170616, end: 20170710
  7. CEFTAZIDIME. [Concomitant]
     Active Substance: CEFTAZIDIME
     Route: 033
     Dates: start: 20170610, end: 20170615
  8. CEFAZOLIN [Concomitant]
     Active Substance: CEFAZOLIN
     Route: 033
     Dates: start: 20170610, end: 20170615
  9. CIPROFLOXACIN. [Concomitant]
     Active Substance: CIPROFLOXACIN
     Indication: PRODUCT USED FOR UNKNOWN INDICATION
     Dates: start: 20170420, end: 20170427

REACTIONS (4)
  - Peritonitis [Recovered/Resolved with Sequelae]
  - Device related infection [Unknown]
  - Klebsiella infection [Unknown]
  - Corynebacterium infection [Unknown]

NARRATIVE: CASE EVENT DATE: 20170610
